APPROVED DRUG PRODUCT: FAMOTIDINE
Active Ingredient: FAMOTIDINE
Strength: 10MG
Dosage Form/Route: TABLET;ORAL
Application: A218003 | Product #001
Applicant: CONTRACT PHARMACAL CORP
Approved: May 28, 2024 | RLD: No | RS: No | Type: OTC